FAERS Safety Report 5179923-4 (Version None)
Quarter: 2006Q4

REPORT INFORMATION
  Report Type: 
  Country: None (occurrence: None)
  Receive Date: 20061212
  Receipt Date: 20061127
  Transmission Date: 20070319
  Serious: Yes (Other)
  Sender: FDA-Public Use
  Company Number: S06-CAN-05120-01

PATIENT
  Age: 39 Year
  Sex: Female

DRUGS (2)
  1. CIPRALEX (ESCITALOPRAM) [Suspect]
     Dosage: 10 MG QD PO
     Route: 048
  2. CELEXA [Concomitant]

REACTIONS (3)
  - DEPERSONALISATION [None]
  - EUPHORIC MOOD [None]
  - PANIC REACTION [None]
